FAERS Safety Report 4938706-8 (Version None)
Quarter: 2006Q1

REPORT INFORMATION
  Report Type: 
  Country: None (occurrence: None)
  Receive Date: 20060127
  Receipt Date: 20051229
  Transmission Date: 20060701
  Serious: Yes (Other)
  Sender: FDA-Public Use
  Company Number: 2005154247

PATIENT
  Age: 42 Year
  Sex: Female

DRUGS (7)
  1. LYRICA [Suspect]
     Indication: MYALGIA
     Dosage: 75 MG (25 MG, 3 IN 1 D), ORAL
     Route: 048
     Dates: start: 20051025, end: 20051031
  2. TRAZODONE HCL [Concomitant]
  3. XANAX [Concomitant]
  4. WELLBUTRIN [Concomitant]
  5. VERAPAMIL [Concomitant]
  6. PROTONIX [Concomitant]
  7. BIOFLAVONOIDS (BIOFLAVONOIDS) [Concomitant]

REACTIONS (2)
  - BLISTER [None]
  - HERPES ZOSTER [None]
